FAERS Safety Report 14617408 (Version 4)
Quarter: 2018Q2

REPORT INFORMATION
  Report Type: Spontaneous
  Country: HU (occurrence: HU)
  Receive Date: 20180309
  Receipt Date: 20180516
  Transmission Date: 20180711
  Serious: Yes (Other)
  Sender: FDA-Public Use
  Company Number: HU-ROCHE-2057918

PATIENT
  Age: 81 Year
  Sex: Male

DRUGS (3)
  1. ALECENSA [Suspect]
     Active Substance: ALECTINIB HYDROCHLORIDE
     Dosage: THERAPY RESTARTED AT THE REDUCED DOSE - 3 CAPSULES TWICE DAILY. LATER THE THERAPY WAS INTERUPTED FOR
     Route: 048
     Dates: start: 20180129
  2. ALECENSA [Suspect]
     Active Substance: ALECTINIB HYDROCHLORIDE
     Indication: NON-SMALL CELL LUNG CANCER
     Dosage: 4 CAPSULES TWICE DAILY, THERAPY INTERRUPTED DUE TO EVENT
     Route: 048
     Dates: start: 20171205, end: 20180116
  3. ALECENSA [Suspect]
     Active Substance: ALECTINIB HYDROCHLORIDE
     Route: 048
     Dates: start: 20180320

REACTIONS (7)
  - Blood creatinine increased [Recovered/Resolved]
  - Bilirubin conjugated increased [Recovered/Resolved]
  - Ocular icterus [Unknown]
  - Haemolysis [Unknown]
  - Blood alkaline phosphatase increased [Recovered/Resolved]
  - Blood lactate dehydrogenase increased [Recovered/Resolved]
  - Blood bilirubin unconjugated increased [Recovered/Resolved]

NARRATIVE: CASE EVENT DATE: 201801
